FAERS Safety Report 7648000-2 (Version None)
Quarter: 2011Q3

REPORT INFORMATION
  Report Type: 
  Country: None (occurrence: None)
  Receive Date: 20110801
  Receipt Date: 20110722
  Transmission Date: 20111222
  Serious: Yes (Hospitalization, Other)
  Sender: FDA-Public Use
  Company Number: JP-BAXTER-2011BH023862

PATIENT

DRUGS (2)
  1. BUMINATE 5% [Suspect]
     Indication: PLASMAPHERESIS
     Route: 042
     Dates: start: 20110721
  2. BUMINATE 5% [Suspect]
     Route: 042

REACTIONS (2)
  - CONVULSION [None]
  - ACIDOSIS [None]
